FAERS Safety Report 22631431 (Version 2)
Quarter: 2023Q2

REPORT INFORMATION
  Report Type: Report from Study
  Country: CN (occurrence: CN)
  Receive Date: 20230623
  Receipt Date: 20230626
  Transmission Date: 20230722
  Serious: Yes (Death, Hospitalization, Other)
  Sender: FDA-Public Use
  Company Number: CN-002147023-NVSC2023CN139767

PATIENT
  Age: 80 Year
  Sex: Female

DRUGS (2)
  1. ACLASTA [Suspect]
     Active Substance: ZOLEDRONIC ACID
     Indication: Osteoporosis
     Dosage: 1 DOSAGE FORM (100 ML/5 MG)
     Route: 042
     Dates: start: 20230616
  2. SODIUM CHLORIDE [Concomitant]
     Active Substance: SODIUM CHLORIDE
     Indication: Product used for unknown indication
     Dosage: 1000 ML
     Route: 042
     Dates: start: 20230616, end: 20230616

REACTIONS (8)
  - Coma [Fatal]
  - Cerebral haemorrhage [Fatal]
  - Enuresis [Unknown]
  - Unresponsive to stimuli [Unknown]
  - Blood pressure increased [Unknown]
  - Muscle twitching [Recovering/Resolving]
  - Limb discomfort [Recovering/Resolving]
  - Pyrexia [Unknown]

NARRATIVE: CASE EVENT DATE: 20230616
